FAERS Safety Report 10636422 (Version 1)
Quarter: 2014Q4

REPORT INFORMATION
  Report Type: Spontaneous
  Country: US (occurrence: US)
  Receive Date: 20141207
  Receipt Date: 20141207
  Transmission Date: 20150529
  Serious: No
  Sender: FDA-Public Use
  Company Number: US-GLAXOSMITHKLINE-A1081109A

PATIENT

DRUGS (2)
  1. HYCAMTIN [Suspect]
     Active Substance: TOPOTECAN HYDROCHLORIDE
     Indication: BRONCHIAL CARCINOMA
     Dosage: 5 MG
     Dates: start: 20140430
  2. HYCAMTIN [Suspect]
     Active Substance: TOPOTECAN HYDROCHLORIDE
     Indication: LUNG NEOPLASM MALIGNANT

REACTIONS (1)
  - Haemoglobin decreased [Unknown]
